FAERS Safety Report 9455264 (Version 2)
Quarter: 2013Q4

REPORT INFORMATION
  Report Type: Spontaneous
  Country: US (occurrence: US)
  Receive Date: 20130813
  Receipt Date: 20131231
  Transmission Date: 20140711
  Serious: Yes (Other)
  Sender: FDA-Public Use
  Company Number: US-BAYER-2013-095208

PATIENT
  Age: 18 Year
  Sex: Female
  Weight: 95.2 kg

DRUGS (7)
  1. YAZ [Suspect]
     Dosage: UNK
     Dates: start: 200906
  2. YASMIN [Suspect]
     Indication: CONTRACEPTION
     Dosage: UNK
     Dates: start: 200906
  3. OCELLA [Suspect]
     Indication: CONTRACEPTION
     Dosage: UNK
     Dates: start: 200906
  4. GARDASIL [Concomitant]
  5. ALBUTEROL [Concomitant]
     Route: 048
  6. FLUTICASONE W/SALMETEROL [Concomitant]
     Route: 048
  7. ADVAIR DISKUS [Concomitant]

REACTIONS (7)
  - Pulmonary embolism [None]
  - Deep vein thrombosis [None]
  - Myocardial infarction [None]
  - Cerebrovascular accident [None]
  - Gallbladder disorder [None]
  - Pain [None]
  - Injury [None]
